FAERS Safety Report 6230364-8 (Version None)
Quarter: 2009Q2

REPORT INFORMATION
  Report Type: 
  Country: None (occurrence: None)
  Receive Date: 20090611
  Receipt Date: 20090526
  Transmission Date: 20091009
  Serious: Yes (Life-Threatening, Other)
  Sender: FDA-Public Use
  Company Number: ACO_00553_2009

PATIENT
  Age: 64 Year
  Sex: Male
  Weight: 60 kg

DRUGS (6)
  1. SIRDALUD /00740702/ (SIRDALUD - TIZANIDINE HYDROCHLORIDE) 6 MG (NOT SP [Suspect]
     Indication: MUSCLE SPASMS
     Dosage: (ORAL)
     Route: 048
     Dates: start: 20051122, end: 20090227
  2. FLOXACILLIN SODIUM [Suspect]
     Indication: DECUBITUS ULCER
     Dosage: (1500 MG)
     Dates: start: 20090119
  3. MAGNESIUM OXIDE [Concomitant]
  4. FERROFUMARAT [Concomitant]
  5. DIPIPERON [Concomitant]
  6. ASCORBIC ACID [Concomitant]

REACTIONS (8)
  - AGGRESSION [None]
  - CATHETER RELATED COMPLICATION [None]
  - DEHYDRATION [None]
  - GENERAL PHYSICAL HEALTH DETERIORATION [None]
  - HEPATITIS TOXIC [None]
  - PYREXIA [None]
  - SOCIAL AVOIDANT BEHAVIOUR [None]
  - WEIGHT DECREASED [None]
